FAERS Safety Report 15387675 (Version 1)
Quarter: 2018Q3

REPORT INFORMATION
  Report Type: Spontaneous
  Country: US (occurrence: US)
  Receive Date: 20180914
  Receipt Date: 20180914
  Transmission Date: 20181010
  Serious: No
  Sender: FDA-Public Use
  Company Number: US-VIFOR (INTERNATIONAL) INC.-VIT-2018-08667

PATIENT
  Age: 63 Year
  Sex: Female

DRUGS (13)
  1. VELTASSA [Suspect]
     Active Substance: PATIROMER
     Indication: HYPERKALAEMIA
     Route: 065
     Dates: end: 201808
  2. VITAMIN D [Concomitant]
     Active Substance: CHOLECALCIFEROL
  3. HUMALOG [Concomitant]
     Active Substance: INSULIN LISPRO
  4. DIOVAN [Concomitant]
     Active Substance: VALSARTAN
  5. BISOPROLOL FUMARATE. [Concomitant]
     Active Substance: BISOPROLOL FUMARATE
  6. TRESIBA [Concomitant]
     Active Substance: INSULIN DEGLUDEC
  7. IRON [Concomitant]
     Active Substance: IRON
  8. FISH OIL [Concomitant]
     Active Substance: FISH OIL
  9. LATANOPROST. [Concomitant]
     Active Substance: LATANOPROST
  10. TIMOLOL MALEATE. [Concomitant]
     Active Substance: TIMOLOL MALEATE
  11. KIONEX [Concomitant]
     Active Substance: SODIUM POLYSTYRENE SULFONATE
  12. PRAVASTATIN SODIUM. [Concomitant]
     Active Substance: PRAVASTATIN SODIUM
  13. PRILOSEC [Concomitant]
     Active Substance: OMEPRAZOLE MAGNESIUM

REACTIONS (1)
  - Diarrhoea [Unknown]

NARRATIVE: CASE EVENT DATE: 20180828
